FAERS Safety Report 6900775-3 (Version None)
Quarter: 2010Q3

REPORT INFORMATION
  Report Type: 
  Country: None (occurrence: None)
  Receive Date: 20100730
  Receipt Date: 20100722
  Transmission Date: 20110219
  Serious: Yes (Death)
  Sender: FDA-Public Use
  Company Number: 2010MA001114

PATIENT
  Age: 49 Year
  Sex: Male

DRUGS (6)
  1. SERTRALINE HYDROCHLORIDE [Suspect]
     Indication: DEPRESSION
     Dosage: 100 MG;PO
     Route: 048
     Dates: start: 20091022, end: 20100708
  2. ATROVENT [Concomitant]
  3. SEREVENT [Concomitant]
  4. QVAR 40 [Concomitant]
  5. DESLORATADINE [Concomitant]
  6. PREV MEDS [Concomitant]

REACTIONS (1)
  - SUBARACHNOID HAEMORRHAGE [None]
